APPROVED DRUG PRODUCT: SITAGLIPTIN PHOSPHATE
Active Ingredient: SITAGLIPTIN PHOSPHATE
Strength: EQ 100MG BASE
Dosage Form/Route: TABLET;ORAL
Application: A202327 | Product #003 | TE Code: AB
Applicant: WATSON LABORATORIES INC
Approved: Dec 30, 2025 | RLD: No | RS: No | Type: RX